FAERS Safety Report 16201925 (Version 1)
Quarter: 2019Q2

REPORT INFORMATION
  Report Type: Spontaneous
  Country: US (occurrence: US)
  Receive Date: 20190312
  Receipt Date: 20190312
  Transmission Date: 20190711
  Serious: No
  Sender: FDA-Public Use
  Company Number: None

PATIENT
  Age: 43 Year
  Sex: Female

DRUGS (2)
  1. IBRANCE [Suspect]
     Active Substance: PALBOCICLIB
     Dates: start: 20170328
  2. FASLODEX [Concomitant]
     Active Substance: FULVESTRANT

REACTIONS (4)
  - Stomatitis [None]
  - Fatigue [None]
  - Rash [None]
  - Wheezing [None]

NARRATIVE: CASE EVENT DATE: 20190312
